FAERS Safety Report 25391591 (Version 1)
Quarter: 2025Q2

REPORT INFORMATION
  Report Type: Spontaneous
  Country: AR (occurrence: AR)
  Receive Date: 20250603
  Receipt Date: 20250603
  Transmission Date: 20250717
  Serious: Yes (Other)
  Sender: AZURITY PHARMACEUTICALS
  Company Number: AR-AZURITY PHARMACEUTICALS, INC.-AZR202505-001519

PATIENT
  Age: 11 Year
  Sex: Male

DRUGS (5)
  1. METHOTREXATE [Suspect]
     Active Substance: METHOTREXATE
     Indication: B-cell type acute leukaemia
     Route: 042
  2. METHOTREXATE [Suspect]
     Active Substance: METHOTREXATE
     Route: 037
  3. METHOTREXATE [Suspect]
     Active Substance: METHOTREXATE
     Route: 042
  4. METHOTREXATE [Suspect]
     Active Substance: METHOTREXATE
     Route: 037
  5. LEUCOVORIN [Concomitant]
     Active Substance: LEUCOVORIN\LEUCOVORIN CALCIUM
     Indication: Product used for unknown indication
     Route: 065

REACTIONS (6)
  - Neurotoxicity [Unknown]
  - Altered state of consciousness [Recovered/Resolved]
  - Choreoathetosis [Recovered/Resolved]
  - Paraesthesia [Recovered/Resolved]
  - Aphasia [Recovered/Resolved]
  - Hemiparesis [Recovered/Resolved]
